FAERS Safety Report 4579963-X (Version None)
Quarter: 2005Q1

REPORT INFORMATION
  Report Type: 
  Country: None (occurrence: None)
  Receive Date: 20050210
  Receipt Date: 20050202
  Transmission Date: 20050727
  Serious: Yes (Other)
  Sender: FDA-Public Use
  Company Number: HQWYE020002FEB05

PATIENT
  Age: 82 Year
  Sex: Female

DRUGS (2)
  1. INIPOMP (PANTOPRAZOLE, TABLET, DELAYED RELEASE) [Suspect]
     Indication: OESOPHAGEAL ULCER
     Dosage: 20 MG 1X PER 1 DAY
     Route: 048
     Dates: start: 20040728, end: 20041101
  2. VASTAREL (TRIMETAZIDINE HYDROCHLORIDE) [Concomitant]

REACTIONS (8)
  - CONSTIPATION [None]
  - FATIGUE [None]
  - HALLUCINATION, VISUAL [None]
  - HEADACHE [None]
  - HYPOAESTHESIA [None]
  - PHOTOPSIA [None]
  - POLLAKIURIA [None]
  - VERTIGO [None]
